FAERS Safety Report 7592596-6 (Version None)
Quarter: 2011Q3

REPORT INFORMATION
  Report Type: 
  Country: None (occurrence: None)
  Receive Date: 20110706
  Receipt Date: 20110624
  Transmission Date: 20111222
  Serious: Yes (Other)
  Sender: FDA-Public Use
  Company Number: CN-SANOFI-AVENTIS-2011SA039980

PATIENT
  Age: 69 Year
  Sex: Female
  Weight: 73 kg

DRUGS (2)
  1. REPAGLINIDE [Concomitant]
     Indication: DIABETES MELLITUS
     Route: 048
     Dates: start: 20100101
  2. LANTUS [Suspect]
     Indication: DIABETES MELLITUS
     Route: 058
     Dates: start: 20110101

REACTIONS (2)
  - FRACTURE [None]
  - DIABETES MELLITUS INADEQUATE CONTROL [None]
